FAERS Safety Report 5225392-5 (Version None)
Quarter: 2007Q1

REPORT INFORMATION
  Report Type: 
  Country: None (occurrence: None)
  Receive Date: 20070131
  Receipt Date: 20070124
  Transmission Date: 20070707
  Serious: Yes (Life-Threatening, Hospitalization)
  Sender: FDA-Public Use
  Company Number: GB-SHR-GB-2006-031467

PATIENT
  Age: 76 Year
  Sex: Male

DRUGS (1)
  1. ULTRAVIST 300 [Suspect]
     Indication: ABDOMINAL X-RAY
     Dosage: 90 ML, 1 DOSE
     Dates: start: 20061017, end: 20061017

REACTIONS (6)
  - ANAPHYLACTIC REACTION [None]
  - CARDIAC ARREST [None]
  - COUGH [None]
  - ERYTHEMA [None]
  - MYOCARDIAL INFARCTION [None]
  - RESPIRATORY FAILURE [None]
